FAERS Safety Report 20393166 (Version 5)
Quarter: 2022Q1

REPORT INFORMATION
  Report Type: Spontaneous
  Country: US (occurrence: US)
  Receive Date: 20220128
  Receipt Date: 20220321
  Transmission Date: 20220423
  Serious: Yes (Other)
  Sender: FDA-Public Use
  Company Number: US-ALLERGAN-2203628US

PATIENT
  Sex: Male

DRUGS (3)
  1. VUITY [Suspect]
     Active Substance: PILOCARPINE HYDROCHLORIDE
     Indication: Presbyopia
     Dosage: 1 GTT, SINGLE
     Route: 047
     Dates: start: 20220122, end: 20220122
  2. AMLODIPINE [Concomitant]
     Active Substance: AMLODIPINE BESYLATE
     Indication: Hypertension
     Route: 048
  3. LISINOPRIL [Concomitant]
     Active Substance: LISINOPRIL
     Indication: Hypertension
     Route: 048

REACTIONS (7)
  - Retinal tear [Recovered/Resolved]
  - Retinal vessel avulsion [Unknown]
  - Halo vision [Recovered/Resolved]
  - Vitreous floaters [Recovered/Resolved]
  - Photopsia [Unknown]
  - Eye pain [Recovered/Resolved]
  - Vision blurred [Recovering/Resolving]

NARRATIVE: CASE EVENT DATE: 20220122
